FAERS Safety Report 17684804 (Version 3)
Quarter: 2023Q1

REPORT INFORMATION
  Report Type: Spontaneous
  Country: US (occurrence: None)
  Receive Date: 20200420
  Receipt Date: 20230227
  Transmission Date: 20230418
  Serious: Yes (Other)
  Sender: FDA-Public Use
  Company Number: 2020SE50711

PATIENT
  Weight: 82.6 kg

DRUGS (53)
  1. NEXIUM [Suspect]
     Active Substance: ESOMEPRAZOLE MAGNESIUM
     Indication: Gastrooesophageal reflux disease
     Route: 048
     Dates: start: 200701, end: 201607
  2. NEXIUM [Suspect]
     Active Substance: ESOMEPRAZOLE MAGNESIUM
     Indication: Gastrooesophageal reflux disease
     Dosage: GENERIC
     Route: 065
  3. NEXIUM [Suspect]
     Active Substance: ESOMEPRAZOLE MAGNESIUM
     Indication: Gastrooesophageal reflux disease
     Route: 048
     Dates: start: 2007, end: 2016
  4. NEXIUM [Suspect]
     Active Substance: ESOMEPRAZOLE MAGNESIUM
     Indication: Gastrooesophageal reflux disease
     Dosage: GENERIC
     Route: 065
     Dates: start: 2016
  5. PREVACID [Suspect]
     Active Substance: LANSOPRAZOLE
     Indication: Gastrooesophageal reflux disease
     Route: 065
     Dates: start: 200701, end: 201607
  6. PREVACID [Suspect]
     Active Substance: LANSOPRAZOLE
     Indication: Gastrooesophageal reflux disease
     Route: 065
     Dates: start: 2008
  7. PANTOPRAZOLE [Suspect]
     Active Substance: PANTOPRAZOLE
     Indication: Gastrooesophageal reflux disease
     Dosage: GENERIC
     Route: 065
  8. PANTOPRAZOLE [Suspect]
     Active Substance: PANTOPRAZOLE
     Indication: Gastrooesophageal reflux disease
     Dosage: GENERIC
     Route: 065
     Dates: start: 2015
  9. CATAPRES [Concomitant]
     Active Substance: CLONIDINE HYDROCHLORIDE
  10. HYDROXYZINE HYDROCHLORIDE [Concomitant]
     Active Substance: HYDROXYZINE HYDROCHLORIDE
  11. CARAC [Concomitant]
     Active Substance: FLUOROURACIL
  12. FENOFIBRATE [Concomitant]
     Active Substance: FENOFIBRATE
  13. SYNTHROID [Concomitant]
     Active Substance: LEVOTHYROXINE SODIUM
  14. AMITRIPTYLINE [Concomitant]
     Active Substance: AMITRIPTYLINE
  15. COLCRYS [Concomitant]
     Active Substance: COLCHICINE
  16. GAVILYTE [Concomitant]
  17. IBUPROFEN [Concomitant]
     Active Substance: IBUPROFEN
  18. ACETAMINOPHEN\HYDROCODONE [Concomitant]
     Active Substance: ACETAMINOPHEN\HYDROCODONE
  19. ENALAPRIL MALEATE [Concomitant]
     Active Substance: ENALAPRIL MALEATE
  20. NITROFURANTOIN [Concomitant]
     Active Substance: NITROFURANTOIN
  21. AUGMENTIN [Concomitant]
     Active Substance: AMOXICILLIN\CLAVULANATE POTASSIUM
  22. METFORMIN [Concomitant]
     Active Substance: METFORMIN HYDROCHLORIDE
  23. AZITHROMYCIN [Concomitant]
     Active Substance: AZITHROMYCIN
  24. MEDROL [Concomitant]
     Active Substance: METHYLPREDNISOLONE
  25. ROCEPHIN [Concomitant]
     Active Substance: CEFTRIAXONE SODIUM
  26. AMITIZA [Concomitant]
     Active Substance: LUBIPROSTONE
  27. LORTAB [Concomitant]
     Active Substance: ACETAMINOPHEN\HYDROCODONE BITARTRATE
  28. SYSTOLIC [Concomitant]
  29. ALPRAZOLAM [Concomitant]
     Active Substance: ALPRAZOLAM
  30. LORICET [Concomitant]
  31. VITAMIN D [Concomitant]
     Active Substance: VITAMIN D NOS
  32. KETOROLAC [Concomitant]
     Active Substance: KETOROLAC TROMETHAMINE
  33. FLONASE [Concomitant]
     Active Substance: FLUTICASONE PROPIONATE
  34. DECADRON [Concomitant]
     Active Substance: DEXAMETHASONE
  35. CYCLOBENZAPRINE [Concomitant]
     Active Substance: CYCLOBENZAPRINE
  36. PHENERGAN [Concomitant]
     Active Substance: PROMETHAZINE HYDROCHLORIDE
  37. LIDOCAINE [Concomitant]
     Active Substance: LIDOCAINE
  38. GENTAMICIN [Concomitant]
     Active Substance: GENTAMICIN
  39. SULFAMETHOXAZOLE\TRIMETHOPRIM [Concomitant]
     Active Substance: SULFAMETHOXAZOLE\TRIMETHOPRIM
  40. ERYTHROMYCIN [Concomitant]
     Active Substance: ERYTHROMYCIN
  41. PREMARIN [Concomitant]
     Active Substance: ESTROGENS, CONJUGATED
  42. DEXTROSE [Concomitant]
     Active Substance: DEXTROSE
  43. CYMBALTA [Concomitant]
     Active Substance: DULOXETINE HYDROCHLORIDE
  44. CITALOPRAM [Concomitant]
     Active Substance: CITALOPRAM HYDROBROMIDE
  45. BACLOFEN [Concomitant]
     Active Substance: BACLOFEN
  46. DIOVAN [Concomitant]
     Active Substance: VALSARTAN
  47. OFLOXACIN [Concomitant]
     Active Substance: OFLOXACIN
  48. MERIDIA [Concomitant]
     Active Substance: SIBUTRAMINE HYDROCHLORIDE
  49. QUININE SULFATE [Concomitant]
     Active Substance: QUININE SULFATE
  50. SPIRONOLACTONE [Concomitant]
     Active Substance: SPIRONOLACTONE
  51. METRONIDAZOLE [Concomitant]
     Active Substance: METRONIDAZOLE
  52. BENICAR [Concomitant]
     Active Substance: OLMESARTAN MEDOXOMIL
  53. SIMVASTATIN [Concomitant]
     Active Substance: SIMVASTATIN

REACTIONS (3)
  - Acute kidney injury [Unknown]
  - Chronic kidney disease [Unknown]
  - Tubulointerstitial nephritis [Unknown]

NARRATIVE: CASE EVENT DATE: 20150410
